FAERS Safety Report 6499786-4 (Version None)
Quarter: 2009Q4

REPORT INFORMATION
  Report Type: 
  Country: None (occurrence: None)
  Receive Date: 20091214
  Receipt Date: 20091214
  Transmission Date: 20100525
  Serious: Yes (Hospitalization)
  Sender: FDA-Public Use
  Company Number: 091120-000012

PATIENT
  Age: 39 Year
  Sex: Female

DRUGS (1)
  1. MEANINGFUL BEAUTY -SPF -GUTHY-RENKER OCTINOXATE5%/OCTISALATE5%/ZINC OX [Suspect]
     Indication: THERAPEUTIC SKIN CARE TOPICAL
     Dosage: PER LABEL/DAILY/TOPICAL
     Route: 061

REACTIONS (3)
  - EYE SWELLING [None]
  - THROAT TIGHTNESS [None]
  - URTICARIA [None]
